FAERS Safety Report 17966671 (Version 1)
Quarter: 2020Q3

REPORT INFORMATION
  Report Type: Spontaneous
  Country: JP (occurrence: JP)
  Receive Date: 20200701
  Receipt Date: 20200701
  Transmission Date: 20201103
  Serious: Yes (Other)
  Sender: FDA-Public Use
  Company Number: JP-SUN PHARMACEUTICAL INDUSTRIES LTD-2019R1-213061

PATIENT
  Age: 26 Year
  Sex: Male

DRUGS (6)
  1. CLOZAPINE. [Suspect]
     Active Substance: CLOZAPINE
     Indication: ELECTROCONVULSIVE THERAPY
     Dosage: 12.5 MILLIGRAM, DAILY (START DOSE)
     Route: 065
  2. CLOZAPINE. [Suspect]
     Active Substance: CLOZAPINE
     Dosage: 100 MILLIGRAM, DAILY
     Route: 065
  3. CLOZAPINE. [Suspect]
     Active Substance: CLOZAPINE
     Dosage: 125 MILLIGRAM, DAILY
     Route: 065
  4. LITHIUM CARBONATE. [Concomitant]
     Active Substance: LITHIUM CARBONATE
     Indication: ELECTROCONVULSIVE THERAPY
     Dosage: 400 MILLIGRAM, DAILY
     Route: 065
  5. CLOZAPINE. [Suspect]
     Active Substance: CLOZAPINE
     Dosage: 50 MILLIGRAM, DAILY
     Route: 065
  6. CLOZAPINE. [Suspect]
     Active Substance: CLOZAPINE
     Dosage: 25 MILLIGRAM,DAILY (IN EVERY 6 TO 7 DAYS)
     Route: 065

REACTIONS (2)
  - Disease recurrence [Unknown]
  - Eosinophilic pneumonia [Unknown]
